FAERS Safety Report 9676341 (Version 2)
Quarter: 2013Q4

REPORT INFORMATION
  Report Type: Spontaneous
  Country: DE (occurrence: DE)
  Receive Date: 20131107
  Receipt Date: 20131230
  Transmission Date: 20140711
  Serious: Yes (Hospitalization)
  Sender: FDA-Public Use
  Company Number: DE-CELGENEUS-062-POMAL-13104909

PATIENT
  Age: 81 Year
  Sex: Male

DRUGS (4)
  1. IMNOVID [Suspect]
     Indication: PLASMA CELL MYELOMA
     Route: 048
     Dates: start: 20130916, end: 20131022
  2. IMNOVID [Suspect]
     Route: 048
     Dates: start: 20131118
  3. CLEXANE [Concomitant]
     Indication: PRODUCT USED FOR UNKNOWN INDICATION
     Route: 065
     Dates: start: 20130916
  4. ZOMETA [Concomitant]
     Indication: PLASMACYTOMA
     Dosage: .0444 MILLIGRAM
     Route: 065
     Dates: start: 20080307

REACTIONS (1)
  - Herpes zoster [Recovered/Resolved]
